FAERS Safety Report 23793480 (Version 1)
Quarter: 2024Q2

REPORT INFORMATION
  Report Type: Other
  Country: GR (occurrence: GR)
  Receive Date: 20240429
  Receipt Date: 20240429
  Transmission Date: 20240716
  Serious: Yes (Life-Threatening, Hospitalization, Other)
  Sender: FDA-Public Use
  Company Number: GR-ASTELLAS-2024US012099

PATIENT
  Age: 8 Year
  Sex: Male
  Weight: 33 kg

DRUGS (1)
  1. CRESEMBA [Suspect]
     Active Substance: ISAVUCONAZONIUM SULFATE
     Indication: Aspergillus infection
     Dosage: 200 MG, OTHER (SINGLE)
     Route: 042
     Dates: start: 20240402, end: 20240402

REACTIONS (3)
  - Respiratory distress [Recovering/Resolving]
  - Obstructive airways disorder [Recovering/Resolving]
  - Product administered to patient of inappropriate age [Unknown]

NARRATIVE: CASE EVENT DATE: 20240402
